FAERS Safety Report 21696017 (Version 1)
Quarter: 2022Q4

REPORT INFORMATION
  Report Type: Spontaneous
  Country: US (occurrence: None)
  Receive Date: 20221206
  Receipt Date: 20221206
  Transmission Date: 20230112
  Serious: Yes (Death)
  Sender: FDA-Public Use
  Company Number: None

PATIENT
  Age: 71 Year
  Sex: Male

DRUGS (1)
  1. TOBRAMYCIN [Suspect]
     Active Substance: TOBRAMYCIN
     Indication: Bronchiectasis
     Dosage: 300 MG/5ML  INHALATION? ?INHALE 5 ML VIA NEBULIZER EVERY 12 HOURS FOR THE FIRST 10 DAYS OF THE MONT
     Route: 055
     Dates: start: 20221027, end: 20221203

REACTIONS (1)
  - Death [None]

NARRATIVE: CASE EVENT DATE: 20221203
